FAERS Safety Report 22736909 (Version 5)
Quarter: 2024Q2

REPORT INFORMATION
  Report Type: Report from Study
  Country: CA (occurrence: CA)
  Receive Date: 20230721
  Receipt Date: 20240614
  Transmission Date: 20240716
  Serious: Yes (Hospitalization, Other)
  Sender: FDA-Public Use
  Company Number: CA-MYLANLABS-2023M1074338

PATIENT

DRUGS (1)
  1. HULIO [Suspect]
     Active Substance: ADALIMUMAB-FKJP
     Indication: Rheumatoid arthritis
     Dosage: 40 MILLIGRAM, BIWEEKLY
     Route: 058
     Dates: start: 20230207

REACTIONS (9)
  - Rheumatoid arthritis [Unknown]
  - Tibia fracture [Unknown]
  - Blood pressure fluctuation [Unknown]
  - Surgery [Unknown]
  - Cellulitis [Unknown]
  - Sepsis [Unknown]
  - Urinary tract infection [Unknown]
  - Streptococcal infection [Recovering/Resolving]
  - Furuncle [Unknown]
